FAERS Safety Report 9788646 (Version 1)
Quarter: 2013Q4

REPORT INFORMATION
  Report Type: Spontaneous
  Country: DK (occurrence: FR)
  Receive Date: 20131230
  Receipt Date: 20131230
  Transmission Date: 20140711
  Serious: Yes (Life-Threatening)
  Sender: FDA-Public Use
  Company Number: FR-FRI-1000052458

PATIENT
  Age: 60 Year
  Sex: Male

DRUGS (9)
  1. ESCITALOPRAM [Suspect]
     Route: 048
  2. PLAVIX [Suspect]
     Dosage: 75 MG
     Route: 048
  3. PREVISCAN [Suspect]
     Route: 048
  4. LOVENOX [Suspect]
     Dosage: 14000 IU
  5. TRIATEC [Concomitant]
  6. AMLOR [Concomitant]
  7. DEPAMIDE [Concomitant]
  8. INEXIUM [Concomitant]
  9. CORDARONE [Concomitant]

REACTIONS (1)
  - Shock haemorrhagic [Unknown]
